FAERS Safety Report 20394247 (Version 1)
Quarter: 2022Q1

REPORT INFORMATION
  Report Type: Spontaneous
  Country: US (occurrence: None)
  Receive Date: 20220129
  Receipt Date: 20220129
  Transmission Date: 20220423
  Serious: Yes (Death)
  Sender: FDA-Public Use
  Company Number: US-MICRO LABS LIMITED-ML2022-00268

PATIENT
  Age: 30 Year
  Sex: Male

DRUGS (11)
  1. DIPHENHYDRAMINE HYDROCHLORIDE [Suspect]
     Active Substance: DIPHENHYDRAMINE HYDROCHLORIDE
  2. ETIZOLAM [Suspect]
     Active Substance: ETIZOLAM
  3. FENTANYL [Suspect]
     Active Substance: FENTANYL
  4. ALCOHOL [Suspect]
     Active Substance: ALCOHOL
  5. 6-ACETYLMORPHINE [Suspect]
     Active Substance: 6-ACETYLMORPHINE
  6. ALPRAZOLAM [Suspect]
     Active Substance: ALPRAZOLAM
  7. CODEINE [Suspect]
     Active Substance: CODEINE
  8. 11-NOR-9-CARBOXY-.DELTA.9-TETRAHYDROCANNABINOL [Suspect]
     Active Substance: 11-NOR-9-CARBOXY-.DELTA.9-TETRAHYDROCANNABINOL
  9. 11-HYDROXY-.DELTA.9-TETRAHYDROCANNABINOL [Suspect]
     Active Substance: 11-HYDROXY-.DELTA.9-TETRAHYDROCANNABINOL
  10. DRONABINOL [Suspect]
     Active Substance: DRONABINOL
  11. MORPHINE [Suspect]
     Active Substance: MORPHINE

REACTIONS (3)
  - Toxicity to various agents [Fatal]
  - Drug interaction [Fatal]
  - Unresponsive to stimuli [Fatal]
